FAERS Safety Report 10043362 (Version 2)
Quarter: 2014Q1

REPORT INFORMATION
  Report Type: Spontaneous
  Country: GB (occurrence: None)
  Receive Date: 20140326
  Receipt Date: 20140331
  Transmission Date: 20141002
  Serious: Yes (Other)
  Sender: FDA-Public Use
  Company Number: AUR-APL-2014-03546

PATIENT
  Age: 71 Year
  Sex: Male

DRUGS (6)
  1. DOXAZOSIN (DOXAZOSIN) [Suspect]
     Indication: PRODUCT USED FOR UNKNOWN INDICATION
     Dates: start: 20140207, end: 20140207
  2. IRBESARTAN (IRBESARTAN) [Suspect]
     Indication: HYPERTENSION
     Dates: start: 20131209, end: 20140207
  3. LERCANIDIPINE (LERCANIDIPINE) [Suspect]
     Indication: HYPERTENSION
     Dates: start: 2004, end: 20140221
  4. ASPIRIN (ACETYLSALICYLIC ACID) [Suspect]
     Indication: ANTICOAGULANT THERAPY
     Dates: start: 2006, end: 20140207
  5. BENDROFLUMETHIAZIDE (BENDROFLUMETHIAZIDE) [Suspect]
     Indication: PRODUCT USED FOR UNKNOWN INDICATION
     Dates: start: 2004, end: 20140207
  6. ATENOLOL (ATENOLOL) [Suspect]
     Indication: PRODUCT USED FOR UNKNOWN INDICATION
     Dates: end: 20140207

REACTIONS (11)
  - Rash pruritic [None]
  - Lip swelling [None]
  - Ocular hyperaemia [None]
  - Eye pruritus [None]
  - Rash macular [None]
  - Erythema [None]
  - Diarrhoea [None]
  - Blood pressure increased [None]
  - Rash macular [None]
  - Abdominal pain upper [None]
  - Product substitution issue [None]
